FAERS Safety Report 8594938 (Version 1)
Quarter: 2012Q4

REPORT INFORMATION
  Report Type: 
  Country: US (occurrence: US)
  Receive Date: 20120829
  Receipt Date: 20120829
  Transmission Date: 20130627
  Serious: Yes (Other)
  Sender: FDA-Public Use
  Company Number: US-BAYER-2012-054537

PATIENT

DRUGS (2)
  1. ULTRAVIST [Suspect]
     Indication: COMPUTERISED TOMOGRAM
     Dosage: UNK
  2. ULTRAVIST [Suspect]
     Indication: COMPUTERISED TOMOGRAM

REACTIONS (1)
  - Contrast media reaction [None]
